FAERS Safety Report 19399934 (Version 2)
Quarter: 2021Q3

REPORT INFORMATION
  Report Type: Spontaneous
  Country: None (occurrence: US)
  Receive Date: 20210610
  Receipt Date: 20210707
  Transmission Date: 20211014
  Serious: No
  Sender: FDA-Public Use
  Company Number: US-MILLICENT HOLDINGS LTD.-MILL20210664

PATIENT
  Age: 70 Year
  Sex: Female
  Weight: 59.93 kg

DRUGS (3)
  1. ASPIRIN. [Concomitant]
     Active Substance: ASPIRIN
     Indication: PRODUCT USED FOR UNKNOWN INDICATION
     Dosage: 81 MG
     Route: 048
  2. VITAMIN D3_ [Concomitant]
     Indication: OSTEOPOROSIS PROPHYLAXIS
     Dosage: 2000 IU
     Route: 048
  3. FEMRING [Suspect]
     Active Substance: ESTRADIOL ACETATE
     Indication: MENOPAUSAL SYMPTOMS
     Dosage: 0.01
     Route: 067

REACTIONS (4)
  - Therapeutic product effect decreased [Not Recovered/Not Resolved]
  - Product colour issue [Not Recovered/Not Resolved]
  - Discomfort [Not Recovered/Not Resolved]
  - Wrong technique in product usage process [None]

NARRATIVE: CASE EVENT DATE: 2020
